FAERS Safety Report 16562165 (Version 1)
Quarter: 2019Q3

REPORT INFORMATION
  Report Type: Spontaneous
  Country: PL (occurrence: PL)
  Receive Date: 20190711
  Receipt Date: 20190711
  Transmission Date: 20191004
  Serious: Yes (Hospitalization)
  Sender: FDA-Public Use
  Company Number: PL-MYLANLABS-2019M1064006

PATIENT
  Age: 41 Year
  Sex: Female

DRUGS (1)
  1. ETHINYLESTRADIOL/NORGESTIMATE [Suspect]
     Active Substance: ETHINYL ESTRADIOL\NORGESTIMATE
     Indication: ORAL CONTRACEPTION
     Dosage: 0.035 MG+0.25 MG

REACTIONS (2)
  - Coronary artery disease [Recovered/Resolved]
  - Coronary artery dissection [Recovered/Resolved]
